FAERS Safety Report 16543437 (Version 1)
Quarter: 2019Q3

REPORT INFORMATION
  Report Type: Spontaneous
  Country: DE (occurrence: DE)
  Receive Date: 20190709
  Receipt Date: 20190709
  Transmission Date: 20191004
  Serious: Yes (Life-Threatening, Hospitalization)
  Sender: FDA-Public Use
  Company Number: DE-ACCORD-137695

PATIENT
  Age: 78 Year
  Sex: Female
  Weight: 58.7 kg

DRUGS (13)
  1. NEUPOGEN [Concomitant]
     Active Substance: FILGRASTIM
     Dosage: 30000 IU, SCHEME, SOLUTION FOR INJECTION / INFUSION
     Route: 058
  2. REQUIP [Concomitant]
     Active Substance: ROPINIROLE HYDROCHLORIDE
     Dosage: 4 MG, 1-0-0-0, SUSTAINED-RELEASE TABLETS
     Route: 048
  3. LOPERAMIDE [Concomitant]
     Active Substance: LOPERAMIDE
     Dosage: 2 MG, NEED, TABLETS
     Route: 048
  4. MADOPAR DEPOT [Concomitant]
     Active Substance: BENSERAZIDE HYDROCHLORIDE\LEVODOPA
     Dosage: 100/25 MG, 1-0-0-0, SUSTAINED-RELEASE CAPSULES
     Route: 048
  5. DEXAMETHASONE. [Concomitant]
     Active Substance: DEXAMETHASONE
     Dosage: 8 MG, SCHEME, TABLETS
     Route: 048
  6. RAMIPRIL. [Concomitant]
     Active Substance: RAMIPRIL
     Dosage: 5 MG, 1-0-0-0, TABLETS
     Route: 048
  7. STALEVO [Concomitant]
     Active Substance: CARBIDOPA\ENTACAPONE\LEVODOPA
     Dosage: 75MG/18,75MG/200MG, 1-1-1-1, TABLETS
     Route: 048
  8. REQUIP [Concomitant]
     Active Substance: ROPINIROLE HYDROCHLORIDE
     Dosage: 8 MG, 1-0-0-0, SUSTAINED-RELEASE TABLETS
     Route: 048
  9. GEMCITABINE/GEMCITABINE HYDROCHLORIDE [Suspect]
     Active Substance: GEMCITABINE\GEMCITABINE HYDROCHLORIDE
     Indication: PRODUCT USED FOR UNKNOWN INDICATION
     Dosage: SCHEME, SOLUTION FOR INJECTION / INFUSION
     Route: 042
  10. CLEXANE [Concomitant]
     Active Substance: ENOXAPARIN SODIUM
     Dosage: 0.4 ML, SCHEME, SOLUTION FOR INJECTION / INFUSION
     Route: 058
  11. NOVAMINSULFON [Concomitant]
     Active Substance: METAMIZOLE
     Dosage: 500 MG, NEED, TABLETS
     Route: 048
  12. VOMEX A [Concomitant]
     Active Substance: DIMENHYDRINATE
     Dosage: 50 MG, NEEDED, COATED TABLETS
     Route: 048
  13. ONDANSETRON [Concomitant]
     Active Substance: ONDANSETRON
     Dosage: 8 MG, SCHEME, TABLETS
     Route: 048

REACTIONS (3)
  - Melaena [Unknown]
  - Haematemesis [Unknown]
  - Haematochezia [Unknown]
